FAERS Safety Report 15793796 (Version 1)
Quarter: 2019Q1

REPORT INFORMATION
  Report Type: Spontaneous
  Country: US (occurrence: US)
  Receive Date: 20190105
  Receipt Date: 20190105
  Transmission Date: 20190417
  Serious: No
  Sender: FDA-Public Use
  Company Number: None

PATIENT
  Age: 59 Year
  Sex: Male
  Weight: 141.75 kg

DRUGS (1)
  1. METHYLPREDNISOLONE. [Suspect]
     Active Substance: METHYLPREDNISOLONE
     Indication: SWELLING
     Dosage: ?          QUANTITY:21 TABLET(S);OTHER FREQUENCY:SCHEDULE;?
     Route: 048
     Dates: start: 20190104

REACTIONS (2)
  - Product label confusion [None]
  - Product use complaint [None]

NARRATIVE: CASE EVENT DATE: 20190104
